FAERS Safety Report 5032897-9 (Version None)
Quarter: 2006Q2

REPORT INFORMATION
  Report Type: 
  Country: None (occurrence: None)
  Receive Date: 20060622
  Receipt Date: 20021107
  Transmission Date: 20061013
  Serious: Yes (Other)
  Sender: FDA-Public Use
  Company Number: BE-AVENTIS-200213626EU

PATIENT
  Sex: Male

DRUGS (5)
  1. KETEK [Suspect]
     Indication: BRONCHITIS
     Route: 048
     Dates: start: 20021018, end: 20021021
  2. KETEK [Suspect]
     Indication: PNEUMONIA CHLAMYDIAL
     Route: 048
     Dates: start: 20021018, end: 20021021
  3. CLARIX [Concomitant]
  4. PLENDIL [Concomitant]
     Indication: HYPERTENSION
  5. AMOXICILLIN + CLAVULANATE POTASSIUM [Concomitant]

REACTIONS (2)
  - HEPATITIS [None]
  - URTICARIA GENERALISED [None]
